FAERS Safety Report 18397773 (Version 1)
Quarter: 2020Q4

REPORT INFORMATION
  Report Type: Spontaneous
  Country: US (occurrence: US)
  Receive Date: 20201019
  Receipt Date: 20201019
  Transmission Date: 20210114
  Serious: Yes (Other)
  Sender: FDA-Public Use
  Company Number: None

PATIENT
  Age: 45 Year
  Sex: Male
  Weight: 76.3 kg

DRUGS (2)
  1. REMDESIVIR. [Suspect]
     Active Substance: REMDESIVIR
     Indication: WRONG DRUG
     Dosage: ?          OTHER FREQUENCY:NOT SCHEDULED;?
     Route: 041
     Dates: start: 20201018, end: 20201018
  2. FENTANYL 2500MCG/ML GTT [Concomitant]
     Dates: start: 20201009

REACTIONS (1)
  - Wrong product administered [None]

NARRATIVE: CASE EVENT DATE: 20201018
